FAERS Safety Report 9364186 (Version 1)
Quarter: 2013Q2

REPORT INFORMATION
  Report Type: Spontaneous
  Country: US (occurrence: US)
  Receive Date: 20130624
  Receipt Date: 20130624
  Transmission Date: 20140414
  Serious: Yes (Death)
  Sender: FDA-Public Use
  Company Number: US-PFIZER INC-2013183655

PATIENT
  Age: 68 Year
  Sex: Female

DRUGS (1)
  1. VFEND [Suspect]
     Indication: LUNG TRANSPLANT
     Dosage: 200 MG, 2X/DAY
     Dates: start: 20130523

REACTIONS (1)
  - Death [Fatal]
